FAERS Safety Report 25883576 (Version 1)
Quarter: 2025Q4

REPORT INFORMATION
  Report Type: Spontaneous
  Country: US (occurrence: US)
  Receive Date: 20251006
  Receipt Date: 20251006
  Transmission Date: 20260117
  Serious: No
  Sender: STALLERGENES
  Company Number: US-STALCOR-2025-AER-02467

PATIENT
  Age: 18 Year
  Sex: Female

DRUGS (2)
  1. PALFORZIA [Suspect]
     Active Substance: PEANUT
     Indication: Food allergy
     Dosage: LAST DOSE OF 3MG ADMINISTERED A DAY PRIOR TO ONSET OF NAUSEA, FACE SWELLING, ITCHY EYES AND THROAT I
     Route: 048
     Dates: start: 20250803
  2. PALFORZIA [Suspect]
     Active Substance: PEANUT
     Dosage: REACTIVE DOSE OF 3MG TAKEN ON 04-AUG-2025 PRIOR TO ONSET OF EVENT OF THROAT SWELLING SENSATION
     Route: 048
     Dates: start: 20250804

REACTIONS (6)
  - Face oedema [Unknown]
  - Eye pruritus [Unknown]
  - Nausea [Unknown]
  - Throat irritation [Unknown]
  - Throat tightness [Unknown]
  - Intentional product misuse [Unknown]

NARRATIVE: CASE EVENT DATE: 20250804
